FAERS Safety Report 21758268 (Version 1)
Quarter: 2022Q4

REPORT INFORMATION
  Report Type: Spontaneous
  Country: US (occurrence: US)
  Receive Date: 20221221
  Receipt Date: 20221221
  Transmission Date: 20230112
  Serious: No
  Sender: FDA-Public Use
  Company Number: US-GSK-US2022187958

PATIENT
  Sex: Male

DRUGS (1)
  1. BREO ELLIPTA [Suspect]
     Active Substance: FLUTICASONE FUROATE\VILANTEROL TRIFENATATE
     Indication: Asthma
     Dosage: N/A

REACTIONS (4)
  - Dyspnoea [Unknown]
  - Impaired work ability [Unknown]
  - Chronic obstructive pulmonary disease [Unknown]
  - Product dose omission issue [Not Recovered/Not Resolved]
